FAERS Safety Report 12805782 (Version 2)
Quarter: 2018Q4

REPORT INFORMATION
  Report Type: Report from Study
  Country: GE (occurrence: GE)
  Receive Date: 20161004
  Receipt Date: 20181004
  Transmission Date: 20190204
  Serious: Yes (Other)
  Sender: FDA-Public Use
  Company Number: GE-B.I. PHARMACEUTICALS,INC./RIDGEFIELD-2015-BI-14718BI

PATIENT
  Age: 61 Year
  Sex: Male
  Weight: 79 kg

DRUGS (7)
  1. BI 1356 [Suspect]
     Active Substance: LINAGLIPTIN
     Indication: TYPE 2 DIABETES MELLITUS
     Route: 048
     Dates: start: 20110927
  2. CANEPHRON [Concomitant]
     Active Substance: HERBALS
     Indication: DIABETIC NEPHROPATHY
     Route: 048
     Dates: start: 20121224, end: 20130114
  3. CANEPHRON [Concomitant]
     Active Substance: HERBALS
     Route: 048
     Dates: start: 20140723, end: 20141021
  4. FURSEMID [Concomitant]
     Active Substance: FUROSEMIDE
     Indication: HYPERCALCAEMIA THERAPY
     Route: 048
     Dates: start: 20140723
  5. ENALAPRIL H [Concomitant]
     Indication: HYPERTENSION
     Route: 048
     Dates: start: 20130425, end: 20141021
  6. PREDUCTAL MR [Concomitant]
     Active Substance: TRIMETAZIDINE DIHYDROCHLORIDE
     Indication: PROPHYLAXIS
     Route: 048
     Dates: start: 20121009, end: 20141021
  7. CARDIOASPIRIN [Concomitant]
     Active Substance: ASPIRIN
     Indication: ANTICOAGULANT THERAPY
     Route: 048
     Dates: end: 20141021

REACTIONS (5)
  - Cardiac failure [Not Recovered/Not Resolved]
  - Lipase increased [Unknown]
  - Amylase increased [Unknown]
  - Acute kidney injury [Recovered/Resolved]
  - Postinfarction angina [Not Recovered/Not Resolved]

NARRATIVE: CASE EVENT DATE: 20141002
